FAERS Safety Report 24971344 (Version 1)
Quarter: 2025Q1

REPORT INFORMATION
  Report Type: Spontaneous
  Country: CN (occurrence: CN)
  Receive Date: 20250214
  Receipt Date: 20250214
  Transmission Date: 20250408
  Serious: Yes (Other)
  Sender: ZHEJIANG YONGTAI
  Company Number: CN-Zhejiang Yongtai pharmaceuticals Co..,Ltd.-2171127

PATIENT
  Age: 79 Year
  Sex: Female
  Weight: 50 kg

DRUGS (2)
  1. GABAPENTIN [Suspect]
     Active Substance: GABAPENTIN
     Indication: Trigeminal neuralgia
     Dates: start: 20250123, end: 20250123
  2. Codeine-Ibuprofen [Concomitant]

REACTIONS (3)
  - Syncope [Recovered/Resolved]
  - Dizziness [Unknown]
  - Vomiting [Unknown]

NARRATIVE: CASE EVENT DATE: 20250123
